FAERS Safety Report 4893880-7 (Version None)
Quarter: 2006Q1

REPORT INFORMATION
  Report Type: 
  Country: None (occurrence: None)
  Receive Date: 20060127
  Receipt Date: 20050125
  Transmission Date: 20060701
  Serious: No
  Sender: FDA-Public Use
  Company Number: US-BRISTOL-MYERS SQUIBB COMPANY-12853164

PATIENT
  Age: 13 Year
  Sex: Male

DRUGS (1)
  1. CEFZIL [Suspect]
     Indication: RESPIRATORY TRACT INFECTION
     Route: 048
     Dates: start: 20050118

REACTIONS (1)
  - EYE INFECTION [None]
